FAERS Safety Report 9183276 (Version 1)
Quarter: 2012Q4

REPORT INFORMATION
  Report Type: 
  Country: NL (occurrence: DE)
  Receive Date: 20121030
  Receipt Date: 20121030
  Transmission Date: 20130627
  Serious: Yes (Hospitalization, Disabling)
  Sender: FDA-Public Use
  Company Number: NL-JNJFOC-20121014103

PATIENT
  Sex: Female

DRUGS (4)
  1. REMICADE [Suspect]
     Indication: CROHN^S DISEASE
     Route: 042
     Dates: start: 200906, end: 200909
  2. AZATHIOPRIN [Concomitant]
     Indication: CROHN^S DISEASE
     Dosage: frequency 1,5, 1-1
     Route: 065
  3. DECORTIN H [Concomitant]
     Dosage: frequency 1-0-0
     Route: 065
  4. IDEOS [Concomitant]
     Dosage: frequency 1-0-1
     Route: 065

REACTIONS (1)
  - Psoriatic arthropathy [Recovered/Resolved]
